FAERS Safety Report 5289083-7 (Version None)
Quarter: 2007Q1

REPORT INFORMATION
  Report Type: 
  Country: None (occurrence: None)
  Receive Date: 20070117
  Receipt Date: 20061030
  Transmission Date: 20070707
  Serious: Yes (Hospitalization)
  Sender: FDA-Public Use
  Company Number: 2006-BP-11642RO

PATIENT
  Sex: Male
  Weight: 100 kg

DRUGS (21)
  1. LITHIUM CARBONATE [Suspect]
     Indication: BIPOLAR DISORDER
     Dosage: 600MG X 2; 300MG X 1 (1500MG/D)
     Dates: start: 19860101, end: 20060702
  2. HYOSCYAMINE (HYOSCYAMINE) [Concomitant]
  3. ZOLOFT [Concomitant]
  4. LASIX [Concomitant]
  5. TOPAMAX [Concomitant]
  6. BUPROPION HCL [Concomitant]
  7. ENALAPRIL MALEATE [Concomitant]
  8. METFORMIN HCL [Concomitant]
  9. LOPID [Concomitant]
  10. VITAMIN D [Concomitant]
  11. MOTRIN [Concomitant]
  12. MULTIVITAMIN [Concomitant]
  13. ATENOLOL [Concomitant]
  14. TRAZODONE HCL [Concomitant]
  15. ABILIFY [Concomitant]
  16. PREVACID [Concomitant]
  17. ATROVENT [Concomitant]
  18. ALBUTEROL [Concomitant]
  19. AEROBID [Concomitant]
  20. THEOPHYLLINE [Concomitant]
  21. TRIAMCINOLONE [Concomitant]

REACTIONS (2)
  - BLOOD CORTISOL ABNORMAL [None]
  - THERAPEUTIC AGENT TOXICITY [None]
